FAERS Safety Report 10190579 (Version 2)
Quarter: 2015Q1

REPORT INFORMATION
  Report Type: Report from Study
  Country: US (occurrence: US)
  Receive Date: 20140523
  Receipt Date: 20150330
  Transmission Date: 20150720
  Serious: Yes (Hospitalization, Other)
  Sender: FDA-Public Use
  Company Number: US-ROCHE-1405718

PATIENT
  Sex: Female
  Weight: 115.32 kg

DRUGS (13)
  1. RITUXAN [Suspect]
     Active Substance: RITUXIMAB
     Indication: NEUROMYELITIS OPTICA
     Route: 042
     Dates: start: 201402
  2. AMPYRA [Concomitant]
     Active Substance: DALFAMPRIDINE
  3. BENADRYL [Concomitant]
     Active Substance: DIPHENHYDRAMINE HYDROCHLORIDE
  4. TYLENOL [Concomitant]
     Active Substance: ACETAMINOPHEN
  5. CYCLOBENZAPRINE [Concomitant]
     Active Substance: CYCLOBENZAPRINE
  6. RITALIN [Concomitant]
     Active Substance: METHYLPHENIDATE HYDROCHLORIDE
  7. CLONAZEPAM. [Concomitant]
     Active Substance: CLONAZEPAM
     Route: 065
  8. TRAZODONE [Concomitant]
     Active Substance: TRAZODONE HYDROCHLORIDE
  9. TALWIN [Concomitant]
     Active Substance: PENTAZOCINE LACTATE
  10. EPITOL [Concomitant]
     Active Substance: CARBAMAZEPINE
  11. TIZANIDINE (TIZANIDINE) [Concomitant]
     Active Substance: TIZANIDINE
  12. FOLIC ACID. [Concomitant]
     Active Substance: FOLIC ACID
  13. METHOTREXATE [Concomitant]
     Active Substance: METHOTREXATE
     Route: 065

REACTIONS (8)
  - Off label use [Unknown]
  - Systemic mycosis [Not Recovered/Not Resolved]
  - Anaemia macrocytic [Not Recovered/Not Resolved]
  - Paralysis [Recovered/Resolved with Sequelae]
  - Neuromyelitis optica [Recovered/Resolved with Sequelae]
  - Sinusitis [Recovered/Resolved]
  - Blood creatinine decreased [Recovering/Resolving]
  - Blood bilirubin decreased [Recovering/Resolving]
